FAERS Safety Report 23946339 (Version 1)
Quarter: 2024Q2

REPORT INFORMATION
  Report Type: Spontaneous
  Country: US (occurrence: US)
  Receive Date: 20240606
  Receipt Date: 20240606
  Transmission Date: 20240716
  Serious: Yes (Other)
  Sender: FDA-Public Use
  Company Number: US-PFIZER INC-202400186676

PATIENT
  Age: 75 Year
  Sex: Female
  Weight: 54.43 kg

DRUGS (3)
  1. MILRINONE [Suspect]
     Active Substance: MILRINONE
     Indication: Cardiac disorder
     Dosage: UNK
     Route: 041
  2. METOPROLOL TARTRATE [Concomitant]
     Active Substance: METOPROLOL TARTRATE
     Indication: Blood pressure abnormal
     Dosage: UNK
  3. ENTRESTO [Concomitant]
     Active Substance: SACUBITRIL\VALSARTAN
     Indication: Blood pressure abnormal
     Dosage: UNK

REACTIONS (18)
  - Cataract [Unknown]
  - Weight increased [Unknown]
  - Drug hypersensitivity [Unknown]
  - Hypoacusis [Unknown]
  - Headache [Unknown]
  - Diarrhoea [Unknown]
  - Lacrimation increased [Unknown]
  - Dizziness [Unknown]
  - Blister [Unknown]
  - Skin exfoliation [Unknown]
  - Constipation [Unknown]
  - Hypotension [Unknown]
  - Gait inability [Unknown]
  - Blood chloride decreased [Unknown]
  - Blood sodium decreased [Unknown]
  - Vascular pain [Unknown]
  - Anxiety [Unknown]
  - Off label use [Unknown]
